FAERS Safety Report 7229119-7 (Version None)
Quarter: 2011Q1

REPORT INFORMATION
  Report Type: 
  Country: None (occurrence: None)
  Receive Date: 20110117
  Receipt Date: 20110112
  Transmission Date: 20110831
  Serious: Yes (Death, Hospitalization, Other)
  Sender: FDA-Public Use
  Company Number: IE-GENZYME-201016119GPV

PATIENT

DRUGS (14)
  1. CYTARABINE [Suspect]
     Dosage: CYCLE 3, 2 MG/M2 X 5/7
     Route: 042
  2. NEUPOGEN [Suspect]
     Indication: ACUTE MYELOID LEUKAEMIA
     Dosage: 30 MIU/DAY TILL COUNT RECOVERY
     Route: 058
  3. IDARUBICIN [Suspect]
     Indication: ACUTE MYELOID LEUKAEMIA
     Dosage: 10 MG/M2, UNK
     Route: 042
  4. MYLOTARG [Suspect]
     Indication: ACUTE MYELOID LEUKAEMIA
     Dosage: 6 MG/M2, UNK
     Route: 042
     Dates: start: 20090921, end: 20090921
  5. CYTARABINE [Suspect]
     Dosage: CYCLE 4
     Route: 042
     Dates: start: 20090921
  6. AMBISOME [Concomitant]
     Indication: PRODUCT USED FOR UNKNOWN INDICATION
     Route: 065
  7. TAZOBACTAM [Concomitant]
     Indication: PRODUCT USED FOR UNKNOWN INDICATION
     Dosage: UNK
     Route: 065
  8. CLOFARABINE [Suspect]
     Dosage: 40 MG/M2, UNK
     Route: 065
     Dates: start: 20090921
  9. CLOFARABINE [Suspect]
     Indication: ACUTE MYELOID LEUKAEMIA
     Dosage: 40 MG/M2, UNK
     Route: 065
  10. FLUDARA [Suspect]
     Indication: ACUTE MYELOID LEUKAEMIA
     Dosage: 30 MG/M2, UNK
     Route: 042
  11. CYTARABINE [Suspect]
     Dosage: CYCLE 2
     Route: 042
  12. VALTREX [Concomitant]
     Indication: PRODUCT USED FOR UNKNOWN INDICATION
     Route: 065
  13. RASBURICASE [Concomitant]
     Indication: PRODUCT USED FOR UNKNOWN INDICATION
     Route: 065
  14. CYTARABINE [Suspect]
     Indication: ACUTE MYELOID LEUKAEMIA
     Dosage: 1 MG/M2, UNK
     Route: 042

REACTIONS (7)
  - SEPTIC SHOCK [None]
  - RESPIRATORY DISORDER [None]
  - PERICARDITIS [None]
  - MULTI-ORGAN FAILURE [None]
  - PLATELET COUNT DECREASED [None]
  - RENAL IMPAIRMENT [None]
  - METABOLIC ACIDOSIS [None]
